FAERS Safety Report 13849665 (Version 1)
Quarter: 2017Q3

REPORT INFORMATION
  Report Type: Report from Study
  Country: US (occurrence: US)
  Receive Date: 20170809
  Receipt Date: 20170809
  Transmission Date: 20171127
  Serious: Yes (Hospitalization, Other)
  Sender: FDA-Public Use
  Company Number: PHHO2010US06258

PATIENT
  Age: 66 Year
  Sex: Male
  Weight: 75.6 kg

DRUGS (3)
  1. RYDAPT [Suspect]
     Active Substance: MIDOSTAURIN
     Dosage: 50 MG, BID
     Route: 048
     Dates: start: 20100503
  2. RYDAPT [Suspect]
     Active Substance: MIDOSTAURIN
     Indication: SYSTEMIC MASTOCYTOSIS
     Dosage: 100 MG, BID
     Route: 048
     Dates: start: 20100331, end: 20100424
  3. RYDAPT [Suspect]
     Active Substance: MIDOSTAURIN
     Dosage: NO TREATMENT
     Route: 065
     Dates: start: 20100425, end: 20100502

REACTIONS (8)
  - Pulmonary haemorrhage [Recovered/Resolved]
  - Pulmonary oedema [Recovered/Resolved]
  - Haemoptysis [Recovered/Resolved]
  - Atrial fibrillation [Unknown]
  - Mitral valve incompetence [Unknown]
  - Cough [Recovered/Resolved]
  - Lung infiltration [Recovered/Resolved]
  - Dyspnoea [Recovered/Resolved]

NARRATIVE: CASE EVENT DATE: 20100418
